FAERS Safety Report 5154526-6 (Version None)
Quarter: 2006Q4

REPORT INFORMATION
  Report Type: 
  Country: None (occurrence: None)
  Receive Date: 20061114
  Receipt Date: 20061030
  Transmission Date: 20070319
  Serious: Yes (Life-Threatening, Hospitalization, Disabling, Other)
  Sender: FDA-Public Use
  Company Number: 2006119331

PATIENT
  Age: 56 Year
  Sex: Female
  Weight: 64 kg

DRUGS (20)
  1. VFEND [Suspect]
     Indication: FEBRILE NEUTROPENIA
     Dosage: SEE IMAGE
     Route: 048
     Dates: start: 20060818, end: 20060818
  2. VFEND [Suspect]
     Indication: FUNGAL INFECTION
     Dosage: SEE IMAGE
     Route: 048
     Dates: start: 20060818, end: 20060818
  3. VFEND [Suspect]
     Indication: FEBRILE NEUTROPENIA
     Dosage: SEE IMAGE
     Route: 048
     Dates: start: 20060819, end: 20060828
  4. VFEND [Suspect]
     Indication: FUNGAL INFECTION
     Dosage: SEE IMAGE
     Route: 048
     Dates: start: 20060819, end: 20060828
  5. VFEND [Suspect]
     Indication: FEBRILE NEUTROPENIA
     Dosage: SEE IMAGE
     Route: 048
     Dates: start: 20060910, end: 20060910
  6. VFEND [Suspect]
     Indication: FUNGAL INFECTION
     Dosage: SEE IMAGE
     Route: 048
     Dates: start: 20060910, end: 20060910
  7. VFEND [Suspect]
     Indication: FEBRILE NEUTROPENIA
     Dosage: SEE IMAGE
     Route: 048
     Dates: start: 20060911, end: 20060925
  8. VFEND [Suspect]
     Indication: FUNGAL INFECTION
     Dosage: SEE IMAGE
     Route: 048
     Dates: start: 20060911, end: 20060925
  9. FLUDARABINE PHOSPHATE [Concomitant]
  10. CYTARABINE [Concomitant]
  11. IDARUBICIN HCL [Concomitant]
  12. GRANULOCYTE COLONY STIMULATING FACTOR (GRANULOCYTE COLONY STIMULATING [Concomitant]
  13. AMPHOTERICIN B [Concomitant]
  14. PIPERACILLIN SODIUM AND TAZOBACTAM SODIUM [Concomitant]
  15. TEICOPLANIN (TEICOPLANIN) [Concomitant]
  16. ALLOPURINOL [Concomitant]
  17. ONDANSETRON [Concomitant]
  18. DOMPERIDONE (DOMPERIDONE) [Concomitant]
  19. ALL OTHER THERAPEUTIC PRODUCTS (ALL OTHER THERAPEUTIC PRODUCTS) [Concomitant]
  20. CFTAZIDIME (CEFTAZIDIME) [Concomitant]

REACTIONS (8)
  - COLOUR BLINDNESS ACQUIRED [None]
  - NERVOUS SYSTEM DISORDER [None]
  - NEUROPATHY PERIPHERAL [None]
  - OPTIC NEUROPATHY [None]
  - PARAESTHESIA [None]
  - VISUAL ACUITY REDUCED [None]
  - VISUAL FIELD DEFECT [None]
  - VITAMIN B12 INCREASED [None]
